FAERS Safety Report 8802653 (Version 2)
Quarter: 2012Q4

REPORT INFORMATION
  Report Type: 
  Country: US (occurrence: US)
  Receive Date: 20120921
  Receipt Date: 20121024
  Transmission Date: 20130627
  Serious: No
  Sender: FDA-Public Use
  Company Number: US-PFIZER INC-2012232750

PATIENT
  Age: 45 Year
  Sex: Female

DRUGS (4)
  1. NEURONTIN [Suspect]
     Dosage: UNK
  2. PRISTIQ [Suspect]
     Dosage: UNK
  3. CHANTIX [Suspect]
     Dosage: UNK
  4. CHANTIX [Suspect]
     Dosage: UNK

REACTIONS (2)
  - Tobacco user [Unknown]
  - Urinary incontinence [Unknown]
